FAERS Safety Report 16418990 (Version 4)
Quarter: 2022Q1

REPORT INFORMATION
  Report Type: Spontaneous
  Country: US (occurrence: None)
  Receive Date: 20190612
  Receipt Date: 20220211
  Transmission Date: 20220423
  Serious: Yes (Other)
  Sender: FDA-Public Use
  Company Number: 2018SF22232

PATIENT
  Age: 17098 Day
  Sex: Female
  Weight: 133.8 kg

DRUGS (47)
  1. PRILOSEC [Suspect]
     Active Substance: OMEPRAZOLE MAGNESIUM
     Indication: Gastrooesophageal reflux disease
     Route: 048
     Dates: start: 20090101, end: 20170901
  2. PRILOSEC [Suspect]
     Active Substance: OMEPRAZOLE MAGNESIUM
     Indication: Gastrooesophageal reflux disease
     Route: 048
     Dates: start: 200901, end: 201709
  3. PRILOSEC [Suspect]
     Active Substance: OMEPRAZOLE MAGNESIUM
     Indication: Gastrooesophageal reflux disease
     Route: 048
     Dates: start: 20090209, end: 20170901
  4. PRILOSEC [Suspect]
     Active Substance: OMEPRAZOLE MAGNESIUM
     Indication: Gastrooesophageal reflux disease
     Dosage: GENERIC
     Route: 065
  5. PRILOSEC [Suspect]
     Active Substance: OMEPRAZOLE MAGNESIUM
     Indication: Gastrooesophageal reflux disease
     Route: 048
     Dates: start: 20090101, end: 20101201
  6. PRILOSEC [Suspect]
     Active Substance: OMEPRAZOLE MAGNESIUM
     Indication: Gastrooesophageal reflux disease
     Route: 048
     Dates: start: 201710
  7. PRILOSEC [Suspect]
     Active Substance: OMEPRAZOLE MAGNESIUM
     Indication: Gastrooesophageal reflux disease
     Dosage: GENERIC
     Route: 065
  8. PREVACID [Suspect]
     Active Substance: LANSOPRAZOLE
     Indication: Gastrooesophageal reflux disease
     Route: 065
     Dates: start: 20110101, end: 20170901
  9. PREVACID [Suspect]
     Active Substance: LANSOPRAZOLE
     Indication: Gastrooesophageal reflux disease
     Route: 065
     Dates: start: 20090101, end: 20170901
  10. PREVACID [Suspect]
     Active Substance: LANSOPRAZOLE
     Indication: Gastrooesophageal reflux disease
     Route: 065
     Dates: start: 200901, end: 201709
  11. PREVACID [Suspect]
     Active Substance: LANSOPRAZOLE
     Indication: Gastrooesophageal reflux disease
     Route: 065
     Dates: start: 20090209, end: 20170901
  12. FLUCONAZOLE [Concomitant]
     Active Substance: FLUCONAZOLE
     Dates: start: 20161118, end: 20170310
  13. FUROSEMIDE [Concomitant]
     Active Substance: FUROSEMIDE
  14. ACYCLOVIR [Concomitant]
     Active Substance: ACYCLOVIR
  15. ZAFIRLUKAST [Concomitant]
     Active Substance: ZAFIRLUKAST
  16. METRONIDAZOLE [Concomitant]
     Active Substance: METRONIDAZOLE
  17. ALBUTEROL [Concomitant]
     Active Substance: ALBUTEROL
  18. DIAZEPAM [Concomitant]
     Active Substance: DIAZEPAM
  19. PREDNISONE [Concomitant]
     Active Substance: PREDNISONE
     Dates: start: 20090128, end: 20090228
  20. FLUTICASONE [Concomitant]
     Active Substance: FLUTICASONE
     Dates: start: 20100723, end: 20120619
  21. ZYRTEC [Concomitant]
     Active Substance: CETIRIZINE HYDROCHLORIDE
     Dates: start: 20100723, end: 20120619
  22. ACLIDINIUM BROMIDE [Concomitant]
     Active Substance: ACLIDINIUM BROMIDE
     Dates: start: 20100723, end: 20120619
  23. POTASSIUM CHLORIDE [Concomitant]
     Active Substance: POTASSIUM CHLORIDE
     Dates: start: 20100723, end: 20120619
  24. AMOXICILLIN CLAVU [Concomitant]
     Dates: start: 20100723, end: 20120619
  25. LIDOCAINE [Concomitant]
     Active Substance: LIDOCAINE
     Dates: start: 20100723, end: 20120619
  26. HYDROCODONE [Concomitant]
     Active Substance: HYDROCODONE
     Dates: start: 20100723, end: 20120619
  27. MUPIROCIN [Concomitant]
     Active Substance: MUPIROCIN
     Dates: start: 20100723, end: 20120619
  28. CITALOPRAM [Concomitant]
     Active Substance: CITALOPRAM HYDROBROMIDE
     Dates: start: 20100723, end: 20120619
  29. ADVAIR HFA [Concomitant]
     Active Substance: FLUTICASONE PROPIONATE\SALMETEROL XINAFOATE
     Dates: start: 20100723, end: 20120619
  30. IBUPROFEN [Concomitant]
     Active Substance: IBUPROFEN
     Dates: start: 20100723, end: 20120619
  31. AMITRIPTYLINE [Concomitant]
     Active Substance: AMITRIPTYLINE
     Dates: start: 20100723, end: 20120619
  32. COMBIVENT [Concomitant]
     Active Substance: ALBUTEROL SULFATE\IPRATROPIUM BROMIDE
     Dates: start: 20100723, end: 20120619
  33. IPRATROPIUM [Concomitant]
     Active Substance: IPRATROPIUM
     Dates: start: 20100723, end: 20120619
  34. PROAIR HFA [Concomitant]
     Active Substance: ALBUTEROL SULFATE
     Dates: start: 20100723, end: 20120619
  35. PROVENTIL [Concomitant]
     Active Substance: ALBUTEROL
     Dates: start: 20100723, end: 20120619
  36. LORATADINE [Concomitant]
     Active Substance: LORATADINE
     Dates: start: 20100723, end: 20120619
  37. NAPROXEN [Concomitant]
     Active Substance: NAPROXEN
     Dates: start: 20100723, end: 20120619
  38. FLUARIX NOS [Concomitant]
     Active Substance: INFLUENZA VIRUS VACCINE
     Dates: start: 20100723, end: 20120619
  39. VALACYCLOVIR [Concomitant]
     Active Substance: VALACYCLOVIR HYDROCHLORIDE
     Dates: start: 20100723, end: 20120619
  40. CYCLOBENZAPRINE [Concomitant]
     Active Substance: CYCLOBENZAPRINE
     Dates: start: 20100723, end: 20120619
  41. FLUOXETINE [Concomitant]
     Active Substance: FLUOXETINE HYDROCHLORIDE
     Dates: start: 20100723, end: 20120619
  42. METHYLPREDNISOLONE [Concomitant]
     Active Substance: METHYLPREDNISOLONE
     Dates: start: 20100723, end: 20120619
  43. OXYBUTYNIN [Concomitant]
     Active Substance: OXYBUTYNIN
     Dates: start: 20100723, end: 20120619
  44. TRAMADOL [Concomitant]
     Active Substance: TRAMADOL
     Dates: start: 20100723, end: 20120619
  45. GABAPENTIN [Concomitant]
     Active Substance: GABAPENTIN
     Dates: start: 20100723, end: 20120619
  46. KETOROLAC [Concomitant]
     Active Substance: KETOROLAC TROMETHAMINE
     Dates: start: 20100723, end: 20120619
  47. SINGULAIR [Concomitant]
     Active Substance: MONTELUKAST SODIUM
     Dates: start: 20100723, end: 20120619

REACTIONS (7)
  - Chronic kidney disease [Not Recovered/Not Resolved]
  - End stage renal disease [Unknown]
  - Acute kidney injury [Unknown]
  - Renal failure [Unknown]
  - Renal injury [Unknown]
  - Tubulointerstitial nephritis [Unknown]
  - Dyspepsia [Unknown]

NARRATIVE: CASE EVENT DATE: 20170210
